FAERS Safety Report 20491276 (Version 1)
Quarter: 2022Q1

REPORT INFORMATION
  Report Type: Spontaneous
  Country: US (occurrence: US)
  Receive Date: 20220218
  Receipt Date: 20220218
  Transmission Date: 20220423
  Serious: Yes (Other)
  Sender: FDA-Public Use
  Company Number: US-PFIZER INC-2021479532

PATIENT
  Age: 85 Year

DRUGS (1)
  1. TOVIAZ [Suspect]
     Active Substance: FESOTERODINE FUMARATE
     Dosage: UNK

REACTIONS (5)
  - Rheumatoid arthritis [Unknown]
  - Spinal laminectomy [Unknown]
  - Spinal operation [Unknown]
  - Malaise [Unknown]
  - Body height decreased [Unknown]
